FAERS Safety Report 11174994 (Version 1)
Quarter: 2015Q2

REPORT INFORMATION
  Report Type: Spontaneous
  Country: US (occurrence: US)
  Receive Date: 20150609
  Receipt Date: 20150609
  Transmission Date: 20150821
  Serious: No
  Sender: FDA-Public Use
  Company Number: US-PFIZER INC-2015189651

PATIENT
  Age: 59 Year
  Sex: Female
  Weight: 70.75 kg

DRUGS (8)
  1. DEPO-MEDROL [Concomitant]
     Active Substance: METHYLPREDNISOLONE ACETATE
     Dosage: 80 MG/ML, (INJECT 1 ML ONCE FOR 1 DOSE)
     Route: 030
  2. DESYREL [Concomitant]
     Active Substance: TRAZODONE HYDROCHLORIDE
     Dosage: 50 MG, 1X/DAY (1 TO 2 TABLETS NIGHTLY)
     Route: 048
  3. AMBIEN [Concomitant]
     Active Substance: ZOLPIDEM TARTRATE
     Dosage: 10 MG, 1X/DAY (AT BEDTIME)
     Route: 048
  4. XELJANZ [Suspect]
     Active Substance: TOFACITINIB CITRATE
     Indication: PALINDROMIC RHEUMATISM
     Dosage: 5 MG, 2X/DAY
     Route: 048
  5. XANAX [Concomitant]
     Active Substance: ALPRAZOLAM
     Dosage: 2 MG, AS NEEDED (3X/DAY)
     Route: 048
  6. PERCOCET [Concomitant]
     Active Substance: ACETAMINOPHEN\OXYCODONE HYDROCHLORIDE
     Indication: PAIN
     Dosage: 2 DF, AS NEEDED (OXYCODONE 10 MG; ACETAMINOPHEN 325 MG) EVERY 6 HOURS
     Route: 048
  7. CELEXA [Concomitant]
     Active Substance: CITALOPRAM HYDROBROMIDE
     Dosage: 40 MG, DAILY
     Route: 048
  8. OYSTER SHELL CALCIUM VIT D3 [Concomitant]
     Dosage: 1 DF, 2X/DAY
     Route: 048

REACTIONS (12)
  - Basophil count abnormal [Unknown]
  - Spinal osteoarthritis [Unknown]
  - Drug ineffective [Unknown]
  - Haemoglobin abnormal [Unknown]
  - Blood sodium abnormal [Unknown]
  - White blood cell disorder [Unknown]
  - Condition aggravated [Unknown]
  - Alanine aminotransferase abnormal [Unknown]
  - Activities of daily living impaired [Unknown]
  - Arthritis [Unknown]
  - Haematocrit abnormal [Unknown]
  - Anion gap abnormal [Unknown]
